FAERS Safety Report 7440694-X (Version None)
Quarter: 2011Q2

REPORT INFORMATION
  Report Type: 
  Country: None (occurrence: None)
  Receive Date: 20110427
  Receipt Date: 20110419
  Transmission Date: 20111010
  Serious: Yes (Hospitalization)
  Sender: FDA-Public Use
  Company Number: FR-B.I. PHARMACEUTICALS,INC./RIDGEFIELD-2011-FF-00281FF

PATIENT
  Sex: Male

DRUGS (12)
  1. STALEVO 100 [Suspect]
     Indication: PARKINSON'S DISEASE
     Dosage: 450 MG
     Dates: start: 20080421
  2. STALEVO 100 [Suspect]
     Dosage: 450 MG
     Route: 048
     Dates: start: 20081013
  3. TEMESTA [Concomitant]
     Dosage: 1.5 MG
     Route: 048
     Dates: start: 20080625
  4. AZILECT [Suspect]
     Indication: PARKINSON'S DISEASE
     Dosage: 1 MG
     Route: 048
     Dates: start: 20100702
  5. SIFROL [Suspect]
     Dosage: 1.24 MG
     Route: 048
     Dates: start: 20080421
  6. SIFROL [Suspect]
     Indication: PARKINSON'S DISEASE
     Route: 048
  7. STALEVO 100 [Suspect]
     Dosage: 500 MG
     Route: 048
  8. SIFROL [Suspect]
     Dosage: 2.64 MG
     Route: 048
     Dates: start: 20081013
  9. STALEVO 100 [Suspect]
     Dosage: 450 OR 500MG DAILY
     Route: 048
     Dates: start: 20080625
  10. SIFROL [Suspect]
     Dosage: 2.37 MG
     Route: 048
     Dates: start: 20080625
  11. SIFROL [Suspect]
     Dosage: 3.15 MG
     Route: 048
     Dates: start: 20081018
  12. SIFROL [Suspect]
     Dosage: 2.3 MG
     Route: 048
     Dates: start: 20080225

REACTIONS (7)
  - LIBIDO INCREASED [None]
  - FRUSTRATION [None]
  - HALLUCINATION [None]
  - HYPERSEXUALITY [None]
  - JUDGEMENT IMPAIRED [None]
  - DISSOCIATIVE IDENTITY DISORDER [None]
  - SEXUAL ABUSE [None]
